FAERS Safety Report 7575306-8 (Version None)
Quarter: 2011Q2

REPORT INFORMATION
  Report Type: 
  Country: None (occurrence: None)
  Receive Date: 20110627
  Receipt Date: 20110617
  Transmission Date: 20111010
  Serious: Yes (Other)
  Sender: FDA-Public Use
  Company Number: GB-B.I. PHARMACEUTICALS,INC./RIDGEFIELD-2011-UK-00598UK

PATIENT
  Age: 71 Year
  Sex: Male

DRUGS (3)
  1. SIMVASTATIN [Concomitant]
     Indication: HYPERCHOLESTEROLAEMIA
     Dosage: 40 MG
     Route: 048
     Dates: start: 20100101
  2. MELOXICAM [Suspect]
     Indication: ARTHRALGIA
     Dosage: 15 MG
     Route: 048
     Dates: start: 20110411, end: 20110509
  3. ACETAMINOPHEN [Concomitant]
     Indication: ARTHRALGIA
     Dosage: 4 G
     Route: 048
     Dates: start: 20091201

REACTIONS (3)
  - ABDOMINAL PAIN [None]
  - DUODENITIS [None]
  - VOMITING [None]
